FAERS Safety Report 10230662 (Version 1)
Quarter: 2014Q2

REPORT INFORMATION
  Report Type: Spontaneous
  Country: US (occurrence: US)
  Receive Date: 20140611
  Receipt Date: 20140611
  Transmission Date: 20141212
  Serious: No
  Sender: FDA-Public Use
  Company Number: US-TEVA-487590USA

PATIENT
  Age: 35 Year
  Sex: Female
  Weight: 64.01 kg

DRUGS (6)
  1. PARAGARD 380A [Suspect]
     Indication: CONTRACEPTION
     Route: 015
     Dates: start: 20140416, end: 20140602
  2. PARAGARD 380A [Suspect]
     Route: 015
     Dates: start: 20140602
  3. FAMOTIDINE [Concomitant]
     Indication: CEREBROVASCULAR ACCIDENT
  4. ATORVASTATIN [Concomitant]
     Indication: CEREBROVASCULAR ACCIDENT
  5. AMLODIPINE [Concomitant]
     Indication: CEREBROVASCULAR ACCIDENT
  6. VITAMINS [Concomitant]
     Indication: SUPPLEMENTATION THERAPY

REACTIONS (1)
  - Device expulsion [Recovered/Resolved]
